FAERS Safety Report 10191869 (Version 4)
Quarter: 2015Q3

REPORT INFORMATION
  Report Type: Spontaneous
  Country: US (occurrence: US)
  Receive Date: 20140523
  Receipt Date: 20150731
  Transmission Date: 20151125
  Serious: Yes (Hospitalization, Other)
  Sender: FDA-Public Use
  Company Number: US-GLAXOSMITHKLINE-A1073670A

PATIENT
  Age: 72 Year
  Sex: Male

DRUGS (15)
  1. ADVAIR HFA [Suspect]
     Active Substance: FLUTICASONE PROPIONATE\SALMETEROL XINAFOATE
     Dosage: 1 PUFF(S), BID
     Route: 055
     Dates: start: 2011
  2. PLAVIX [Concomitant]
     Active Substance: CLOPIDOGREL BISULFATE
  3. COQ10 [Concomitant]
     Active Substance: UBIDECARENONE
  4. AMLODIPINE [Concomitant]
     Active Substance: AMLODIPINE BESYLATE
  5. NIACIN. [Concomitant]
     Active Substance: NIACIN
  6. ADVAIR HFA [Suspect]
     Active Substance: FLUTICASONE PROPIONATE\SALMETEROL XINAFOATE
     Indication: EMPHYSEMA
     Dosage: 250/50
     Route: 055
     Dates: start: 2011
  7. IRON PILLS [Concomitant]
     Active Substance: IRON
  8. PRILOSEC [Concomitant]
     Active Substance: OMEPRAZOLE MAGNESIUM
  9. SPIRIVA [Suspect]
     Active Substance: TIOTROPIUM BROMIDE MONOHYDRATE
     Indication: PRODUCT USED FOR UNKNOWN INDICATION
     Route: 065
  10. FERROUS SULFATE [Concomitant]
     Active Substance: FERROUS SULFATE\FERROUS SULFATE, DRIED
  11. METOPROLOL [Concomitant]
     Active Substance: METOPROLOL
  12. NIASPAN ER [Concomitant]
     Active Substance: NIACIN
  13. BABY ASPIRIN [Concomitant]
     Active Substance: ASPIRIN
  14. PROAIR HFA [Concomitant]
     Active Substance: ALBUTEROL SULFATE
  15. ISOSORBIDE. [Concomitant]
     Active Substance: ISOSORBIDE

REACTIONS (11)
  - Pneumonia [Unknown]
  - Nasopharyngitis [Recovering/Resolving]
  - Cataract operation [Unknown]
  - Acidosis [Unknown]
  - Intracranial aneurysm [Unknown]
  - Gastrooesophageal reflux disease [Unknown]
  - Lung infection [Recovering/Resolving]
  - Oxygen saturation decreased [Recovered/Resolved]
  - Pulmonary mass [Unknown]
  - Ill-defined disorder [Unknown]
  - Dysphonia [Unknown]

NARRATIVE: CASE EVENT DATE: 2012
